FAERS Safety Report 4354679-3 (Version None)
Quarter: 2004Q2

REPORT INFORMATION
  Report Type: 
  Country: None (occurrence: None)
  Receive Date: 20040507
  Receipt Date: 20040415
  Transmission Date: 20050107
  Serious: Yes (Other)
  Sender: FDA-Public Use
  Company Number: PHBS2004BR05220

PATIENT
  Age: 54 Year
  Sex: Female
  Weight: 80 kg

DRUGS (6)
  1. MIACALCIN [Suspect]
     Indication: OSTEOPENIA
     Dosage: 50 UI/0.5ML QMO
     Route: 030
     Dates: start: 20030501, end: 20040415
  2. ALENDRONATE SODIUM [Concomitant]
     Indication: OSTEOPENIA
     Dosage: UNK, QW
     Route: 048
  3. EVISTA [Concomitant]
     Indication: OSTEOPENIA
  4. GLUCONATE SODIUM [Concomitant]
     Indication: OSTEOPENIA
     Dosage: 500 MG, UNK
     Route: 048
  5. MAGNESIUM [Concomitant]
     Indication: OSTEOPENIA
     Dosage: 100 MG, UNK
     Route: 048
  6. COLECALCIFEROL [Concomitant]
     Indication: OSTEOPENIA
     Dosage: 400 IU, UNK
     Route: 048

REACTIONS (11)
  - CHILLS [None]
  - HYPERSENSITIVITY [None]
  - INSOMNIA [None]
  - LYMPHADENOPATHY [None]
  - NAUSEA [None]
  - PARAESTHESIA [None]
  - PRURITUS [None]
  - RED BLOOD CELLS URINE POSITIVE [None]
  - VAGINAL DISORDER [None]
  - VAGINITIS [None]
  - WHITE BLOOD CELLS URINE POSITIVE [None]
